FAERS Safety Report 5479180-5 (Version None)
Quarter: 2007Q4

REPORT INFORMATION
  Report Type: 
  Country: None (occurrence: None)
  Receive Date: 20071002
  Receipt Date: 20070920
  Transmission Date: 20080405
  Serious: Yes (Hospitalization)
  Sender: FDA-Public Use
  Company Number: GXKR2007GR08231

PATIENT
  Age: 74 Year
  Sex: Male

DRUGS (4)
  1. CLOZAPINE [Suspect]
     Indication: SCHIZOPHRENIA, CATATONIC TYPE
     Dosage: 600 MG
  2. HALOPERIDOL [Concomitant]
  3. BIPERIDEN HYDROCHLORIDE TAB [Concomitant]
  4. VALPROATE SODIUM [Concomitant]

REACTIONS (2)
  - DROP ATTACKS [None]
  - FALL [None]
